FAERS Safety Report 7597271-X (Version None)
Quarter: 2011Q3

REPORT INFORMATION
  Report Type: 
  Country: None (occurrence: None)
  Receive Date: 20110708
  Receipt Date: 20110202
  Transmission Date: 20111222
  Serious: Yes (Hospitalization)
  Sender: FDA-Public Use
  Company Number: US-GLAXOSMITHKLINE-A0911449A

PATIENT
  Age: 40 Year
  Sex: Female

DRUGS (5)
  1. SINGULAIR [Concomitant]
  2. PROAIR HFA [Concomitant]
  3. CLARITIN [Concomitant]
  4. FLOVENT [Suspect]
     Indication: ASTHMA
     Route: 055
  5. FLONASE [Concomitant]

REACTIONS (2)
  - ASTHMA [None]
  - DRUG INEFFECTIVE [None]
